FAERS Safety Report 10860664 (Version 1)
Quarter: 2015Q1

REPORT INFORMATION
  Report Type: Report from Study
  Country: CA (occurrence: CA)
  Receive Date: 20150224
  Receipt Date: 20150224
  Transmission Date: 20150721
  Serious: Yes (Other)
  Sender: FDA-Public Use
  Company Number: CA-AMGEN-CANSL2015015913

PATIENT
  Age: 75 Year
  Sex: Female

DRUGS (7)
  1. ARAVA [Concomitant]
     Active Substance: LEFLUNOMIDE
     Dosage: UNK
  2. OMEGA 3                            /01334101/ [Concomitant]
     Active Substance: OMEGA-3 FATTY ACIDS
     Dosage: UNK
  3. METOPROLOL [Concomitant]
     Active Substance: METOPROLOL
     Dosage: UNK
  4. VITAMIN C [Concomitant]
     Active Substance: ASCORBIC ACID
     Dosage: UNK
  5. VITAMIN D                          /00107901/ [Concomitant]
     Active Substance: ERGOCALCIFEROL
     Dosage: UNK
  6. ENBREL [Suspect]
     Active Substance: ETANERCEPT
     Indication: PSORIATIC ARTHROPATHY
     Dosage: 50 MG, QWK
     Route: 065
     Dates: start: 20140930
  7. DIOVAN [Concomitant]
     Active Substance: VALSARTAN
     Dosage: UNK

REACTIONS (5)
  - Haemorrhagic diathesis [Recovered/Resolved]
  - Contusion [Recovered/Resolved]
  - Pallor [Recovered/Resolved]
  - Scratch [Recovered/Resolved]
  - Paraesthesia [Not Recovered/Not Resolved]
